FAERS Safety Report 8778143 (Version 2)
Quarter: 2012Q4

REPORT INFORMATION
  Report Type: 
  Country: US (occurrence: US)
  Receive Date: 20120912
  Receipt Date: 20121107
  Transmission Date: 20130627
  Serious: No
  Sender: FDA-Public Use
  Company Number: US-ASTRAZENECA-2012SE60904

PATIENT
  Age: 74 Year
  Sex: Female
  Weight: 78.9 kg

DRUGS (7)
  1. BRILINTA [Suspect]
     Indication: POST THROMBOTIC SYNDROME
     Route: 048
     Dates: start: 20120801
  2. CRESTOR [Interacting]
     Route: 048
  3. TEGRETOL [Interacting]
     Route: 065
  4. TEGRETOL [Interacting]
     Route: 065
  5. LYRICA [Concomitant]
  6. ASPIRIN [Concomitant]
  7. SYNTHROID [Concomitant]

REACTIONS (6)
  - Drug interaction [Not Recovered/Not Resolved]
  - Pain [Not Recovered/Not Resolved]
  - Aphagia [Not Recovered/Not Resolved]
  - Speech disorder [Not Recovered/Not Resolved]
  - Trigeminal neuralgia [Recovering/Resolving]
  - Dyspnoea [Recovering/Resolving]
